FAERS Safety Report 9690712 (Version 1)
Quarter: 2013Q4

REPORT INFORMATION
  Report Type: Spontaneous
  Country: US (occurrence: None)
  Receive Date: 20131114
  Receipt Date: 20131114
  Transmission Date: 20140711
  Serious: Yes (Other)
  Sender: FDA-Public Use
  Company Number: None

PATIENT
  Age: 55 Year
  Sex: Male
  Weight: 99.79 kg

DRUGS (4)
  1. MOVIPREP [Suspect]
     Indication: BOWEL PREPARATION
     Dosage: 2-32OZ DOSINGS, TAKEN BY MOUTH
     Route: 048
     Dates: start: 20131112, end: 20131112
  2. MOVIPREP [Suspect]
     Indication: COLONOSCOPY
     Dosage: 2-32OZ DOSINGS, TAKEN BY MOUTH
     Route: 048
     Dates: start: 20131112, end: 20131112
  3. CALCIUM SUPPLEMENT [Concomitant]
  4. VITAMIN D SUPPLEMENT [Concomitant]

REACTIONS (3)
  - Headache [None]
  - Nausea [None]
  - Vomiting [None]
